FAERS Safety Report 9384172 (Version 1)
Quarter: 2013Q3

REPORT INFORMATION
  Report Type: Spontaneous
  Country: US (occurrence: None)
  Receive Date: 20130702
  Receipt Date: 20130702
  Transmission Date: 20140515
  Serious: Yes (Hospitalization)
  Sender: FDA-Public Use
  Company Number: None

PATIENT
  Age: 64 Year
  Sex: Female
  Weight: 80.29 kg

DRUGS (2)
  1. XARELTO [Suspect]
     Indication: PROPHYLAXIS
     Dosage: 10MG DAILY P.O.
     Route: 048
     Dates: start: 20130508, end: 20130519
  2. XARELTO [Suspect]
     Indication: SURGERY
     Dosage: 10MG DAILY P.O.
     Route: 048
     Dates: start: 20130508, end: 20130519

REACTIONS (1)
  - Diplopia [None]
